FAERS Safety Report 14425312 (Version 8)
Quarter: 2018Q3

REPORT INFORMATION
  Report Type: Report from Study
  Country: FR (occurrence: FR)
  Receive Date: 20180123
  Receipt Date: 20180802
  Transmission Date: 20181010
  Serious: Yes (Death, Life-Threatening, Hospitalization, Disabling, Other)
  Sender: FDA-Public Use
  Company Number: FR-PFIZER INC-2018025756

PATIENT
  Age: 60 Year
  Sex: Female
  Weight: 64 kg

DRUGS (7)
  1. SUTENT [Suspect]
     Active Substance: SUNITINIB MALATE
     Dosage: UNK
     Dates: start: 20160705, end: 20160902
  2. INEXIUM /01479302/ [Concomitant]
     Active Substance: ESOMEPRAZOLE MAGNESIUM
     Indication: GASTROOESOPHAGEAL REFLUX DISEASE
     Dosage: UNK
     Route: 048
     Dates: start: 2015
  3. PREVISCAN /00789001/ [Concomitant]
     Active Substance: FLUINDIONE
     Indication: SUBCLAVIAN VEIN THROMBOSIS
     Dosage: UNK
     Route: 048
     Dates: start: 201512
  4. TAHOR [Suspect]
     Active Substance: ATORVASTATIN CALCIUM
     Indication: HYPERCHOLESTEROLAEMIA
     Dosage: 10 MG, 1X/DAY
     Route: 048
     Dates: start: 20151023
  5. AFINITOR [Suspect]
     Active Substance: EVEROLIMUS
     Indication: PANCREATIC NEUROENDOCRINE TUMOUR
     Dosage: 10 MG, 1X/DAY
     Dates: start: 20150908, end: 20160531
  6. SOMATULINE LP [Concomitant]
     Active Substance: LANREOTIDE ACETATE
     Indication: PANCREATIC NEUROENDOCRINE TUMOUR
     Dosage: 120 MG, MONTHLY
     Route: 030
     Dates: start: 20130801
  7. INNOHEP [Concomitant]
     Active Substance: TINZAPARIN SODIUM
     Dosage: UNK
     Route: 058
     Dates: start: 201512

REACTIONS (28)
  - General physical health deterioration [Fatal]
  - Palmar-plantar erythrodysaesthesia syndrome [Recovered/Resolved]
  - Concomitant disease aggravated [Recovered/Resolved]
  - Interstitial lung disease [Recovered/Resolved]
  - Cholestasis [Fatal]
  - Ascites [Fatal]
  - Weight decreased [Unknown]
  - Ear infection [Recovered/Resolved]
  - Headache [Recovered/Resolved]
  - Rhinalgia [Unknown]
  - Bone pain [Unknown]
  - Burning sensation mucosal [Not Recovered/Not Resolved]
  - Jaundice [Fatal]
  - Neoplasm progression [Fatal]
  - Anaemia [Unknown]
  - Hypercholesterolaemia [Recovered/Resolved]
  - Mucosal inflammation [Recovered/Resolved]
  - Hepatomegaly [Fatal]
  - Mucosal inflammation [Recovered/Resolved]
  - Febrile neutropenia [Recovered/Resolved]
  - Ear infection [Unknown]
  - Epistaxis [Unknown]
  - Pulmonary mass [Unknown]
  - Anaemia [Recovered/Resolved]
  - Hypertriglyceridaemia [Recovered/Resolved]
  - Aphthous ulcer [Recovered/Resolved]
  - Nasal discomfort [Recovered/Resolved]
  - Nasal crusting [Unknown]

NARRATIVE: CASE EVENT DATE: 2015
